FAERS Safety Report 9165306 (Version 2)
Quarter: 2013Q2

REPORT INFORMATION
  Report Type: Spontaneous
  Country: FR (occurrence: None)
  Receive Date: 20130228
  Receipt Date: 20130610
  Transmission Date: 20140414
  Serious: Yes (Other)
  Sender: FDA-Public Use
  Company Number: HRA-CDB20130018

PATIENT
  Age: 36 Year
  Sex: Female

DRUGS (2)
  1. ELLAONE [Suspect]
     Indication: POST COITAL CONTRACEPTION
     Route: 048
     Dates: start: 20130122, end: 20130122
  2. MINIDRILL (ETHINYLESTRADIOL) [Concomitant]

REACTIONS (2)
  - Unintended pregnancy [None]
  - Pregnancy after post coital contraception [None]
